FAERS Safety Report 5612147-2 (Version None)
Quarter: 2008Q1

REPORT INFORMATION
  Report Type: 
  Country: None (occurrence: None)
  Receive Date: 20080204
  Receipt Date: 20080129
  Transmission Date: 20080703
  Serious: Yes (Life-Threatening, Hospitalization)
  Sender: FDA-Public Use
  Company Number: PHEH2007US15656

PATIENT
  Age: 70 Year
  Sex: Male
  Weight: 104 kg

DRUGS (6)
  1. LOPRESSOR [Suspect]
     Indication: ARTERIAL OCCLUSIVE DISEASE
     Dosage: 25 MG, BID
     Route: 048
     Dates: start: 20040101, end: 20041019
  2. GLUCOPHAGE [Concomitant]
  3. PLAVIX [Concomitant]
     Indication: TRANSIENT ISCHAEMIC ATTACK
     Dosage: 75 MG, QD
     Route: 048
  4. FOSINOPRIL W/HYDROCHLOROTHIAZIDE [Concomitant]
     Indication: HYPERTENSION
     Dosage: 20/12.5 MG, QD
  5. ZOCOR [Concomitant]
     Indication: DYSLIPIDAEMIA
     Dosage: 20 MG, QD
     Route: 048
  6. LEXAPRO [Concomitant]

REACTIONS (5)
  - BLOOD PRESSURE DECREASED [None]
  - BRADYCARDIA [None]
  - HYPERHIDROSIS [None]
  - LOSS OF CONSCIOUSNESS [None]
  - PRESYNCOPE [None]
